FAERS Safety Report 7247916-9 (Version None)
Quarter: 2011Q1

REPORT INFORMATION
  Report Type: 
  Country: None (occurrence: None)
  Receive Date: 20110127
  Receipt Date: 20110121
  Transmission Date: 20110831
  Serious: No
  Sender: FDA-Public Use
  Company Number: US-PFIZER INC-2011015408

PATIENT
  Sex: Male

DRUGS (2)
  1. HUMIRA [Suspect]
  2. CELEBREX [Suspect]
     Indication: ARTHRITIS
     Dosage: 400 MG DAILY

REACTIONS (2)
  - DRUG INEFFECTIVE [None]
  - PSORIASIS [None]
